FAERS Safety Report 10257094 (Version 2)
Quarter: 2014Q2

REPORT INFORMATION
  Report Type: Spontaneous
  Country: IR (occurrence: IR)
  Receive Date: 20140625
  Receipt Date: 20140625
  Transmission Date: 20141212
  Serious: Yes (Other)
  Sender: FDA-Public Use
  Company Number: IR-ACCORD-024399

PATIENT
  Age: 30 Year
  Sex: Female

DRUGS (5)
  1. PACLITAXEL/PACLITAXEL LIPOSOME [Suspect]
     Indication: OVARIAN ADENOMA
     Dosage: WEEKLY
  2. RANITIDINE [Concomitant]
     Indication: PREMEDICATION
     Dosage: 30 MINUTES PRIOR TO THE FIRST DOSE OF PACLITAXEL
     Route: 042
  3. CARBOPLATIN [Concomitant]
     Indication: OVARIAN ADENOMA
     Dosage: AUC 2
  4. CHLORPHENAMINE [Concomitant]
     Indication: PREMEDICATION
     Route: 042
  5. DEXAMETHASONE [Concomitant]
     Indication: PREMEDICATION
     Route: 042

REACTIONS (2)
  - Fingerprint loss [Recovered/Resolved]
  - Palmar-plantar erythrodysaesthesia syndrome [Recovering/Resolving]
